FAERS Safety Report 8243545-9 (Version None)
Quarter: 2012Q1

REPORT INFORMATION
  Report Type: 
  Country: None (occurrence: None)
  Receive Date: 20120329
  Receipt Date: 20120321
  Transmission Date: 20120608
  Serious: Yes (Hospitalization)
  Sender: FDA-Public Use
  Company Number: PHHO2012FR004772

PATIENT
  Sex: Male

DRUGS (3)
  1. MYCOPHENOLATE MOFETIL (CELLCEPT) [Concomitant]
     Indication: TRANSPLANT REJECTION
     Dosage: 2 G, QD
     Route: 002
     Dates: start: 20120113
  2. NEORAL [Suspect]
     Indication: RENAL TRANSPLANT
     Dosage: 150 MG, QD
     Route: 002
     Dates: start: 20120113
  3. PREDNISONE TAB [Concomitant]
     Indication: TRANSPLANT REJECTION
     Dosage: 10 MG, QD
     Route: 002
     Dates: start: 20120116

REACTIONS (2)
  - RENAL FAILURE ACUTE [None]
  - OVERDOSE [None]
